FAERS Safety Report 19885415 (Version 1)
Quarter: 2021Q3

REPORT INFORMATION
  Report Type: Spontaneous
  Country: US (occurrence: US)
  Receive Date: 20210927
  Receipt Date: 20210927
  Transmission Date: 20211014
  Serious: No
  Sender: FDA-Public Use
  Company Number: US-GLAXOSMITHKLINE-USCH2021065505

PATIENT

DRUGS (2)
  1. ADVIL [Suspect]
     Active Substance: IBUPROFEN
     Indication: GINGIVAL PAIN
  2. ADVIL [Suspect]
     Active Substance: IBUPROFEN
     Indication: GINGIVAL SWELLING
     Dosage: 8 DF, QD

REACTIONS (3)
  - Incorrect dose administered [Unknown]
  - Drug effective for unapproved indication [Unknown]
  - Product use in unapproved indication [Unknown]
